FAERS Safety Report 10653941 (Version 1)
Quarter: 2014Q4

REPORT INFORMATION
  Report Type: Spontaneous
  Country: US (occurrence: None)
  Receive Date: 20141215
  Receipt Date: 20141215
  Transmission Date: 20150529
  Serious: Yes (Death)
  Sender: FDA-Public Use
  Company Number: None

PATIENT
  Age: 71 Year
  Sex: Male
  Weight: 76 kg

DRUGS (4)
  1. ENOXAPARIN 80 MG SYRINGE WINTHROP PHARM [Suspect]
     Active Substance: ENOXAPARIN
     Indication: PULMONARY EMBOLISM
     Route: 058
  2. WARFARIN [Suspect]
     Active Substance: WARFARIN
     Indication: PULMONARY EMBOLISM
     Dosage: 1 TABLET QD ORAL
     Route: 048
     Dates: start: 20141030, end: 20141205
  3. WARFARIN [Suspect]
     Active Substance: WARFARIN
     Indication: DEEP VEIN THROMBOSIS
     Dosage: 1 TABLET QD ORAL
     Route: 048
     Dates: start: 20141030, end: 20141205
  4. ENOXAPARIN 80 MG SYRINGE WINTHROP PHARM [Suspect]
     Active Substance: ENOXAPARIN
     Indication: DEEP VEIN THROMBOSIS
     Route: 058

REACTIONS (6)
  - Vomiting [None]
  - Brain midline shift [None]
  - Incontinence [None]
  - International normalised ratio decreased [None]
  - Subdural haematoma [None]
  - Unresponsive to stimuli [None]

NARRATIVE: CASE EVENT DATE: 20141205
